FAERS Safety Report 10677090 (Version 5)
Quarter: 2017Q1

REPORT INFORMATION
  Report Type: Report from Study
  Country: None (occurrence: TR)
  Receive Date: 20141226
  Receipt Date: 20170227
  Transmission Date: 20170428
  Serious: Yes (Other)
  Sender: FDA-Public Use
  Company Number: TR-ABBVIE-14K-161-1325897-00

PATIENT
  Age: 35 Year
  Sex: Female
  Weight: 45 kg

DRUGS (3)
  1. INH [Suspect]
     Active Substance: ISONIAZID
     Indication: TUBERCULOSIS
     Route: 048
     Dates: start: 20140120, end: 201405
  2. HUMIRA [Suspect]
     Active Substance: ADALIMUMAB
     Indication: COLITIS ULCERATIVE
     Route: 058
     Dates: start: 20140212, end: 20140521
  3. INH [Suspect]
     Active Substance: ISONIAZID
     Indication: PROPHYLAXIS

REACTIONS (1)
  - Hepatotoxicity [Recovering/Resolving]

NARRATIVE: CASE EVENT DATE: 201405
